FAERS Safety Report 4315248-4 (Version None)
Quarter: 2004Q1

REPORT INFORMATION
  Report Type: 
  Country: None (occurrence: None)
  Receive Date: 20040311
  Receipt Date: 20040302
  Transmission Date: 20041129
  Serious: Yes (Death, Hospitalization, Other)
  Sender: FDA-Public Use
  Company Number: IT-BRISTOL-MYERS SQUIBB COMPANY-12523528

PATIENT
  Age: 70 Year
  Sex: Male

DRUGS (2)
  1. COUMADIN [Suspect]
     Indication: ATRIAL FIBRILLATION
     Route: 048
     Dates: start: 20010201, end: 20031231
  2. COUMADIN [Suspect]
     Indication: ATRIAL FLUTTER
     Route: 048
     Dates: start: 20010201, end: 20031231

REACTIONS (4)
  - BLOOD PRESSURE INCREASED [None]
  - CEREBRAL HAEMORRHAGE [None]
  - COMA [None]
  - EMOTIONAL DISTRESS [None]
